FAERS Safety Report 9405429 (Version 1)
Quarter: 2013Q3

REPORT INFORMATION
  Report Type: Spontaneous
  Country: US (occurrence: US)
  Receive Date: 20130717
  Receipt Date: 20130717
  Transmission Date: 20140515
  Serious: No
  Sender: FDA-Public Use
  Company Number: US-009507513-1306USA011872

PATIENT
  Age: 64 Year
  Sex: Female
  Weight: 85.71 kg

DRUGS (7)
  1. VICTRELIS [Suspect]
     Dosage: 800 MG, TID
     Route: 048
     Dates: end: 201306
  2. PEGASYS [Concomitant]
  3. RIBAPAK [Concomitant]
     Dosage: 1200/DAY
  4. ADVIL [Concomitant]
  5. IMODIUM ADVANCED [Concomitant]
  6. PROCRIT [Concomitant]
  7. HYDROCHLOROTHIAZIDE (+) TRIAMTERENE [Concomitant]

REACTIONS (2)
  - White blood cell count decreased [Unknown]
  - Vertigo [Unknown]
